FAERS Safety Report 10047196 (Version 2)
Quarter: 2014Q1

REPORT INFORMATION
  Report Type: Spontaneous
  Country: US (occurrence: US)
  Receive Date: 20140331
  Receipt Date: 20140331
  Transmission Date: 20141002
  Serious: No
  Sender: FDA-Public Use
  Company Number: US-MYLANLABS-2013S1018521

PATIENT
  Age: 45 Year
  Sex: Female
  Weight: 92.99 kg

DRUGS (21)
  1. FENTANYL TRANSDERMAL SYSTEM [Suspect]
     Indication: ARTHRALGIA
     Dosage: CHANGE Q72HR
     Route: 062
     Dates: start: 20111019, end: 201308
  2. FENTANYL TRANSDERMAL SYSTEM [Suspect]
     Indication: ARTHRITIS
     Dosage: CHANGE Q72HR
     Route: 062
     Dates: start: 20111019, end: 201308
  3. FENTANYL TRANSDERMAL SYSTEM [Suspect]
     Indication: PAIN
     Dosage: CHANGE Q72HR
     Route: 062
     Dates: start: 20111019, end: 201308
  4. FENTANYL TRANSDERMAL SYSTEM [Suspect]
     Indication: ARTHRALGIA
     Dosage: CHANGE Q72HR
     Route: 062
     Dates: start: 201308
  5. FENTANYL TRANSDERMAL SYSTEM [Suspect]
     Indication: ARTHRITIS
     Dosage: CHANGE Q72HR
     Route: 062
     Dates: start: 201308
  6. FENTANYL TRANSDERMAL SYSTEM [Suspect]
     Indication: PAIN
     Dosage: CHANGE Q72HR
     Route: 062
     Dates: start: 201308
  7. CELEXA [Concomitant]
     Indication: DEPRESSION
     Route: 048
     Dates: start: 20100301
  8. XANAX [Concomitant]
     Indication: DEPRESSION
     Route: 048
     Dates: start: 20101025
  9. CRESTOR [Concomitant]
     Indication: BLOOD CHOLESTEROL INCREASED
     Route: 048
     Dates: start: 20100125
  10. SINGULAR [Concomitant]
     Indication: MULTIPLE ALLERGIES
     Route: 048
     Dates: start: 20120826
  11. AMBIEN [Concomitant]
     Indication: INSOMNIA
     Dosage: PRN/HS
     Route: 048
     Dates: start: 20100514
  12. BENTYL [Concomitant]
     Indication: IRRITABLE BOWEL SYNDROME
     Route: 048
  13. TOPROL [Concomitant]
     Indication: BLOOD PRESSURE INCREASED
     Dosage: XL
     Route: 048
     Dates: start: 20101112
  14. CLOTRIMAZOLE [Concomitant]
     Dates: start: 20110217
  15. TRIAMCINOLONE [Concomitant]
     Dosage: 0.1% CREAM
     Dates: start: 20120326
  16. CILOSTAZOL [Concomitant]
     Dates: start: 20101001
  17. PRADAXA [Concomitant]
     Dates: start: 20110212
  18. BUTALBITAL+APAP+CAFFEINE [Concomitant]
     Dosage: 50/325/140
     Dates: start: 20120701
  19. VITAMIN D2 [Concomitant]
     Dates: start: 20110107
  20. PROMETHAZINE [Concomitant]
     Dates: start: 20100129
  21. OXYCODONE / ACETAMINOPHEN [Concomitant]
     Dosage: 10/325
     Dates: start: 20111118

REACTIONS (8)
  - Drug effect increased [Recovered/Resolved]
  - Drug interaction [Recovered/Resolved]
  - Vision blurred [Recovered/Resolved]
  - Vomiting [Recovered/Resolved]
  - Nausea [Recovered/Resolved]
  - Hyperhidrosis [Recovered/Resolved]
  - Flushing [Recovered/Resolved]
  - Diarrhoea [Recovered/Resolved]
